FAERS Safety Report 4549603-4 (Version None)
Quarter: 2005Q1

REPORT INFORMATION
  Report Type: 
  Country: None (occurrence: None)
  Receive Date: 20050106
  Receipt Date: 20041225
  Transmission Date: 20050727
  Serious: Yes (Hospitalization, Other)
  Sender: FDA-Public Use
  Company Number: 2004121667

PATIENT
  Age: 65 Year
  Sex: Female
  Weight: 92.0802 kg

DRUGS (2)
  1. BEXTRA [Suspect]
     Indication: EXOSTOSIS
     Dosage: (10 MG, QD INTERVAL: EVERY DAY), ORAL
     Route: 048
     Dates: start: 20040401
  2. VALSARTAN (VALSARTAN) [Concomitant]

REACTIONS (7)
  - BLOOD POTASSIUM DECREASED [None]
  - BLOOD PRESSURE INCREASED [None]
  - BLOOD UREA INCREASED [None]
  - DEHYDRATION [None]
  - SUPRAVENTRICULAR EXTRASYSTOLES [None]
  - SYNCOPE [None]
  - VENTRICULAR EXTRASYSTOLES [None]
